FAERS Safety Report 23530136 (Version 1)
Quarter: 2024Q1

REPORT INFORMATION
  Report Type: Spontaneous
  Country: JP (occurrence: JP)
  Receive Date: 20240216
  Receipt Date: 20240216
  Transmission Date: 20240410
  Serious: Yes (Hospitalization)
  Sender: FDA-Public Use
  Company Number: JP-NEBO-PC012996

PATIENT
  Age: 87 Year
  Sex: Male
  Weight: 62 kg

DRUGS (7)
  1. FERRIC DERISOMALTOSE [Suspect]
     Active Substance: FERRIC DERISOMALTOSE
     Indication: Iron deficiency anaemia
     Route: 050
     Dates: start: 20231201, end: 20231201
  2. ALLELOCK [Concomitant]
     Active Substance: OLOPATADINE HYDROCHLORIDE
     Indication: Rhinitis allergic
     Dates: start: 20180620
  3. BICALUTAMIDE [Concomitant]
     Active Substance: BICALUTAMIDE
     Indication: Prostate cancer
     Dates: start: 20230826
  4. AZOSEMIDE [Concomitant]
     Active Substance: AZOSEMIDE
     Indication: Cardiac failure congestive
     Dates: start: 20230519
  5. DIGOXIN [Concomitant]
     Active Substance: DIGOXIN
     Indication: Atrial fibrillation
     Dates: start: 20230519
  6. ESOMEPRAZOLE MAGNESIUM [Concomitant]
     Active Substance: ESOMEPRAZOLE\ESOMEPRAZOLE MAGNESIUM\ESOMEPRAZOLE MAGNESIUM DIHYDRATE
     Indication: Gastrooesophageal reflux disease
     Dates: start: 20200526
  7. TULOBUTEROL [Concomitant]
     Active Substance: TULOBUTEROL
     Indication: Asthma
     Dates: start: 20211124

REACTIONS (2)
  - Anaphylactic shock [Recovered/Resolved]
  - Pneumonia [Recovered/Resolved]

NARRATIVE: CASE EVENT DATE: 20231201
